FAERS Safety Report 14990070 (Version 1)
Quarter: 2018Q2

REPORT INFORMATION
  Report Type: Spontaneous
  Country: DE (occurrence: DE)
  Receive Date: 20180608
  Receipt Date: 20180608
  Transmission Date: 20180711
  Serious: Yes (Death, Other)
  Sender: FDA-Public Use
  Company Number: DE-TEVA-2018-DE-904585

PATIENT
  Age: 10 Year
  Sex: Male
  Weight: 35 kg

DRUGS (6)
  1. TRAMAL [Concomitant]
     Active Substance: TRAMADOL
     Indication: PAIN
     Route: 065
  2. PARACETAMOL [Concomitant]
     Active Substance: ACETAMINOPHEN
     Route: 065
  3. TUTOFUSIN (AMINO ACIDS\ELECTROLYTES NOS\VITAMINS) [Suspect]
     Active Substance: AMINO ACIDS\ELECTROLYTES NOS\VITAMINS
     Route: 041
     Dates: start: 1991, end: 1991
  4. HL5 500ML INFUSION (CALCIUM CHLORIDE\MAGNESIUM CHLORIDE ANHYDROUS\POTASSIUM CHLORIDE) [Suspect]
     Active Substance: CALCIUM CHLORIDE\MAGNESIUM CHLORIDE ANHYDROUS\POTASSIUM CHLORIDE
     Route: 041
  5. REPARIL (ESCIN) [Concomitant]
     Active Substance: ESCIN
     Indication: SWELLING
     Dates: start: 19910216, end: 19910221
  6. MCP-RATIOPHARM 4MG/1ML [Suspect]
     Active Substance: METOCLOPRAMIDE
     Indication: VOMITING
     Dosage: 20 DROPS AT 13.00 AND AT 18.00 AM
     Route: 048
     Dates: start: 1991

REACTIONS (11)
  - Loss of consciousness [Unknown]
  - Diplopia [Unknown]
  - Overdose [Unknown]
  - Meningitis bacterial [Fatal]
  - Brain herniation [None]
  - Pyrexia [Unknown]
  - Death [Unknown]
  - Dyspnoea [Unknown]
  - Somnolence [Unknown]
  - Headache [Unknown]
  - Brain oedema [None]

NARRATIVE: CASE EVENT DATE: 1991
